FAERS Safety Report 10960763 (Version 5)
Quarter: 2015Q3

REPORT INFORMATION
  Report Type: Spontaneous
  Country: US (occurrence: US)
  Receive Date: 20150327
  Receipt Date: 20150814
  Transmission Date: 20151125
  Serious: Yes (Life-Threatening, Hospitalization, Other)
  Sender: FDA-Public Use
  Company Number: US-PFIZER INC-2015107651

PATIENT
  Age: 62 Year
  Sex: Female
  Weight: 77 kg

DRUGS (24)
  1. TRAZODONE [Suspect]
     Active Substance: TRAZODONE HYDROCHLORIDE
     Dosage: 50 MG, 1X/DAY
     Route: 048
     Dates: start: 201502
  2. ALPRAZOLAM. [Concomitant]
     Active Substance: ALPRAZOLAM
     Indication: ANXIETY
     Dosage: 1 MG, 1X/DAY
     Route: 048
     Dates: start: 1990
  3. NEXIUM 24HR [Suspect]
     Active Substance: ESOMEPRAZOLE MAGNESIUM
     Dosage: 23 MG, 1X/DAY
     Route: 048
     Dates: start: 2014, end: 2014
  4. VIMOVO [Suspect]
     Active Substance: ESOMEPRAZOLE MAGNESIUM\NAPROXEN
     Indication: CARPAL TUNNEL SYNDROME
     Dosage: UNK, DAILY
     Route: 048
     Dates: start: 201112, end: 201112
  5. PREMARIN [Concomitant]
     Active Substance: ESTROGENS, CONJUGATED
     Dosage: UNK
  6. NEXIUM 24HR [Suspect]
     Active Substance: ESOMEPRAZOLE MAGNESIUM
     Dosage: 20 MG, 1X/DAY
     Dates: start: 2014, end: 2014
  7. CYMBALTA [Concomitant]
     Active Substance: DULOXETINE HYDROCHLORIDE
     Indication: GASTROOESOPHAGEAL REFLUX DISEASE
  8. PROZAC [Concomitant]
     Active Substance: FLUOXETINE HYDROCHLORIDE
     Indication: MAJOR DEPRESSION
     Dosage: UNK
  9. TRAZODONE [Suspect]
     Active Substance: TRAZODONE HYDROCHLORIDE
     Indication: INSOMNIA
     Dosage: 100 MG, 1X/DAY
     Route: 048
     Dates: start: 2009, end: 201502
  10. ZANTAC [Suspect]
     Active Substance: RANITIDINE HYDROCHLORIDE
  11. FLUOXETINE [Concomitant]
     Active Substance: FLUOXETINE\FLUOXETINE HYDROCHLORIDE
     Indication: DEPRESSION
     Dosage: 40 MG, 1X/DAY
     Route: 048
     Dates: start: 201412
  12. VIMOVO [Suspect]
     Active Substance: ESOMEPRAZOLE MAGNESIUM\NAPROXEN
     Indication: ARTHRITIS
     Dosage: 500/20MG DAILY
     Route: 048
     Dates: start: 201111, end: 201112
  13. NEXIUM [Suspect]
     Active Substance: ESOMEPRAZOLE MAGNESIUM
     Dosage: 40 MG, 1X/DAY
     Route: 048
     Dates: start: 2015
  14. LOMOTIL [Concomitant]
     Active Substance: ATROPINE SULFATE\DIPHENOXYLATE HYDROCHLORIDE
     Indication: DIARRHOEA
     Dosage: 2.5 MG, FOUR TIMES A DAY AS NEEDED
     Route: 048
     Dates: start: 2000
  15. INSULIN [Concomitant]
     Active Substance: INSULIN NOS
     Indication: DIABETES MELLITUS
     Dosage: UNK
     Dates: start: 1993
  16. AXID AR [Suspect]
     Active Substance: NIZATIDINE
     Dosage: UNK
  17. VIMOVO [Suspect]
     Active Substance: ESOMEPRAZOLE MAGNESIUM\NAPROXEN
     Indication: JOINT SWELLING
  18. CYMBALTA [Concomitant]
     Active Substance: DULOXETINE HYDROCHLORIDE
     Indication: DYSPEPSIA
     Dosage: 60 MG, 1X/DAY
  19. POTASSIUM CHLORIDE. [Concomitant]
     Active Substance: POTASSIUM CHLORIDE
     Indication: BLOOD POTASSIUM DECREASED
     Dosage: 10 MEQ, 1X/DAY
     Route: 048
     Dates: start: 201412
  20. NEXIUM [Suspect]
     Active Substance: ESOMEPRAZOLE MAGNESIUM
     Indication: DYSPEPSIA
     Dosage: 40 MG, 1X/DAY
     Route: 048
     Dates: start: 2010
  21. NEXIUM [Suspect]
     Active Substance: ESOMEPRAZOLE MAGNESIUM
     Indication: GASTROOESOPHAGEAL REFLUX DISEASE
     Dosage: 40 MG, 1X/DAY
     Route: 048
     Dates: start: 2012, end: 2013
  22. NEXIUM 24HR [Suspect]
     Active Substance: ESOMEPRAZOLE MAGNESIUM
     Indication: GASTROOESOPHAGEAL REFLUX DISEASE
     Dosage: 46 MG, 1X/DAY
     Route: 048
     Dates: start: 2014, end: 2014
  23. PRILOSEC OTC [Suspect]
     Active Substance: OMEPRAZOLE MAGNESIUM
     Indication: GASTROOESOPHAGEAL REFLUX DISEASE
     Dosage: UNK
     Route: 048
     Dates: start: 201502, end: 201502
  24. HYDROCODONE [Concomitant]
     Active Substance: HYDROCODONE
     Indication: PAIN
     Dosage: 7.5/325MG, Q6H
     Route: 048
     Dates: start: 2011

REACTIONS (33)
  - Gastrointestinal gangrene [Recovered/Resolved with Sequelae]
  - Wrong drug administered [Unknown]
  - Dyspepsia [Unknown]
  - Grip strength decreased [Unknown]
  - Off label use [Recovered/Resolved]
  - Drug dose omission [Unknown]
  - Drug ineffective for unapproved indication [Unknown]
  - Carpal tunnel syndrome [Unknown]
  - Kidney infection [Unknown]
  - Speech disorder [Unknown]
  - Tendonitis [Unknown]
  - Activities of daily living impaired [Unknown]
  - Dysphonia [Unknown]
  - Tonsillitis [Unknown]
  - Sleep disorder [Recovered/Resolved]
  - Rectal haemorrhage [Recovered/Resolved]
  - Fall [Unknown]
  - Musculoskeletal chest pain [Not Recovered/Not Resolved]
  - Intentional product misuse [Unknown]
  - Drug ineffective [Unknown]
  - Blood potassium decreased [Unknown]
  - Eating disorder symptom [Recovered/Resolved]
  - Musculoskeletal discomfort [Not Recovered/Not Resolved]
  - Haemorrhage [Unknown]
  - Oropharyngeal pain [Unknown]
  - Haemorrhoids [Unknown]
  - Bursitis [Unknown]
  - Skin odour abnormal [Unknown]
  - Gastrointestinal disorder [Unknown]
  - Burn oesophageal [Unknown]
  - Crohn^s disease [Not Recovered/Not Resolved]
  - Gastrooesophageal reflux disease [Unknown]
  - Abdominal pain upper [Unknown]

NARRATIVE: CASE EVENT DATE: 201111
